FAERS Safety Report 12173355 (Version 2)
Quarter: 2016Q4

REPORT INFORMATION
  Report Type: Report from Study
  Country: JP (occurrence: JP)
  Receive Date: 20160311
  Receipt Date: 20161111
  Transmission Date: 20170207
  Serious: Yes (Disabling)
  Sender: FDA-Public Use
  Company Number: JP-BAUSCH-BL-2016-005922

PATIENT
  Age: 63 Year
  Sex: Male
  Weight: 39 kg

DRUGS (20)
  1. CHOREAZINE TABLETS 12.5 MG [Suspect]
     Active Substance: TETRABENAZINE
     Route: 048
     Dates: start: 20140813, end: 20140819
  2. CHOREAZINE TABLETS 12.5 MG [Suspect]
     Active Substance: TETRABENAZINE
     Route: 048
     Dates: start: 20150729, end: 20150902
  3. RISPERIDONE OD [Concomitant]
     Route: 048
     Dates: start: 20150514, end: 20150610
  4. MAGMITT [Concomitant]
     Active Substance: MAGNESIUM OXIDE
     Indication: PRODUCT USED FOR UNKNOWN INDICATION
     Route: 048
     Dates: start: 20141029
  5. QUETIAPINE FUMARATE. [Concomitant]
     Active Substance: QUETIAPINE FUMARATE
     Route: 048
     Dates: start: 20150902, end: 20150930
  6. CHOREAZINE TABLETS 12.5 MG [Suspect]
     Active Substance: TETRABENAZINE
     Route: 048
     Dates: start: 20150902, end: 20151030
  7. RISPERIDONE OD [Concomitant]
     Route: 048
     Dates: start: 20140807, end: 20140903
  8. QUETIAPINE FUMARATE. [Concomitant]
     Active Substance: QUETIAPINE FUMARATE
     Route: 048
     Dates: start: 20150701, end: 20150902
  9. CHOREAZINE TABLETS 12.5 MG [Suspect]
     Active Substance: TETRABENAZINE
     Route: 048
     Dates: start: 20140910, end: 20140916
  10. CHOREAZINE TABLETS 12.5 MG [Suspect]
     Active Substance: TETRABENAZINE
     Route: 048
     Dates: start: 20140924, end: 20150311
  11. CHOREAZINE TABLETS 12.5 MG [Suspect]
     Active Substance: TETRABENAZINE
     Route: 048
     Dates: start: 20150311, end: 20150729
  12. QUETIAPINE FUMARATE. [Concomitant]
     Active Substance: QUETIAPINE FUMARATE
     Indication: PRODUCT USED FOR UNKNOWN INDICATION
     Route: 048
     Dates: start: 20150610, end: 20150701
  13. CHOREAZINE TABLETS 12.5 MG [Suspect]
     Active Substance: TETRABENAZINE
     Route: 048
     Dates: start: 20140820, end: 20140826
  14. CHOREAZINE TABLETS 12.5 MG [Suspect]
     Active Substance: TETRABENAZINE
     Route: 048
     Dates: start: 20140917, end: 20140923
  15. RISPERIDONE OD [Concomitant]
     Indication: PRODUCT USED FOR UNKNOWN INDICATION
     Route: 048
     Dates: start: 20140124, end: 20140806
  16. QUETIAPINE FUMARATE. [Concomitant]
     Active Substance: QUETIAPINE FUMARATE
     Route: 048
     Dates: start: 20150930, end: 20151202
  17. CHOREAZINE TABLETS 12.5 MG [Suspect]
     Active Substance: TETRABENAZINE
     Indication: HUNTINGTON^S DISEASE
     Route: 048
     Dates: start: 20140806, end: 20140812
  18. CHOREAZINE TABLETS 12.5 MG [Suspect]
     Active Substance: TETRABENAZINE
     Route: 048
     Dates: start: 20140827, end: 20140902
  19. CHOREAZINE TABLETS 12.5 MG [Suspect]
     Active Substance: TETRABENAZINE
     Route: 048
     Dates: start: 20140903, end: 20140909
  20. CHOREAZINE TABLETS 12.5 MG [Suspect]
     Active Substance: TETRABENAZINE
     Route: 048
     Dates: start: 20151030, end: 20151202

REACTIONS (1)
  - Dyskinesia [Recovered/Resolved]

NARRATIVE: CASE EVENT DATE: 20150311
